FAERS Safety Report 13901691 (Version 1)
Quarter: 2017Q3

REPORT INFORMATION
  Report Type: Spontaneous
  Country: US (occurrence: US)
  Receive Date: 20170824
  Receipt Date: 20170824
  Transmission Date: 20171127
  Serious: No
  Sender: FDA-Public Use
  Company Number: US-ROCHE-1280142

PATIENT
  Sex: Female

DRUGS (1)
  1. HERCEPTIN [Suspect]
     Active Substance: TRASTUZUMAB
     Indication: BREAST CANCER
     Route: 065

REACTIONS (6)
  - Crystal urine [Unknown]
  - Haemoglobin urine present [Unknown]
  - Bladder irritation [Unknown]
  - Drug tolerance [Unknown]
  - Urinary tract infection [Not Recovered/Not Resolved]
  - Urine abnormality [Unknown]
